FAERS Safety Report 7514068-7 (Version None)
Quarter: 2011Q2

REPORT INFORMATION
  Report Type: 
  Country: None (occurrence: None)
  Receive Date: 20110531
  Receipt Date: 20100323
  Transmission Date: 20111010
  Serious: No
  Sender: FDA-Public Use
  Company Number: US-BAYER-201017459NA

PATIENT
  Sex: Male

DRUGS (1)
  1. AVELOX [Suspect]
     Dosage: UNK
     Route: 048
     Dates: start: 20091201

REACTIONS (3)
  - DYSPNOEA [None]
  - OEDEMA PERIPHERAL [None]
  - RASH [None]
